FAERS Safety Report 4696549-7 (Version None)
Quarter: 2005Q2

REPORT INFORMATION
  Report Type: 
  Country: None (occurrence: None)
  Receive Date: 20050620
  Receipt Date: 20050606
  Transmission Date: 20051028
  Serious: Yes (Hospitalization, Other)
  Sender: FDA-Public Use
  Company Number: 2002073330

PATIENT
  Age: 79 Year
  Sex: Male
  Weight: 61.2 kg

DRUGS (6)
  1. TIKOSYN [Suspect]
     Indication: ATRIAL FIBRILLATION
     Dosage: 500 MCG (250 MCG, BID), ORAL
     Route: 048
     Dates: start: 20021224, end: 20021201
  2. DILTIAZEM [Suspect]
     Indication: ILL-DEFINED DISORDER
     Dosage: UNKNOWN
     Route: 065
  3. LASIX [Concomitant]
  4. SIMVASTATIN [Concomitant]
  5. DOXYCYCLINE [Concomitant]
  6. KEFLEX [Concomitant]

REACTIONS (6)
  - BLOOD POTASSIUM DECREASED [None]
  - CARDIAC FAILURE CONGESTIVE [None]
  - CELLULITIS [None]
  - DYSPNOEA [None]
  - ELECTROCARDIOGRAM QT CORRECTED INTERVAL PROLONGED [None]
  - THERAPY NON-RESPONDER [None]
